FAERS Safety Report 6722857-1 (Version None)
Quarter: 2010Q2

REPORT INFORMATION
  Report Type: 
  Country: None (occurrence: None)
  Receive Date: 20100512
  Receipt Date: 20100512
  Transmission Date: 20101027
  Serious: Yes (Other)
  Sender: FDA-Public Use
  Company Number: None

PATIENT
  Age: 69 Year
  Sex: Female
  Weight: 50 kg

DRUGS (1)
  1. FENTANYL TRANSDERMAL SYSTEM 50 MCG SANDOZ- ALZA CORPORATION [Suspect]
     Indication: MYALGIA
     Dosage: 50 MCG EVERY 72 HOURS TRANSDERMAL PATCH
     Route: 062
     Dates: start: 20100401, end: 20100503

REACTIONS (2)
  - DRUG EFFECT DECREASED [None]
  - PRODUCT SUBSTITUTION ISSUE [None]
